FAERS Safety Report 23842648 (Version 1)
Quarter: 2024Q2

REPORT INFORMATION
  Report Type: Spontaneous
  Country: BR (occurrence: BR)
  Receive Date: 20240510
  Receipt Date: 20240510
  Transmission Date: 20240716
  Serious: Yes (Other)
  Sender: FDA-Public Use
  Company Number: BR-002147023-NVSC2024BR098811

PATIENT
  Age: 76 Year
  Sex: Male

DRUGS (1)
  1. BETOPTIC [Suspect]
     Active Substance: BETAXOLOL HYDROCHLORIDE
     Indication: Glaucoma
     Dosage: 5.6 MILLIGRAM PER MILLILITRE
     Route: 047

REACTIONS (4)
  - Cerebrovascular accident [Unknown]
  - Cataract [Unknown]
  - Lung neoplasm malignant [Unknown]
  - Product availability issue [Unknown]
